FAERS Safety Report 20119454 (Version 1)
Quarter: 2021Q4

REPORT INFORMATION
  Report Type: Spontaneous
  Country: PT (occurrence: PT)
  Receive Date: 20211126
  Receipt Date: 20211126
  Transmission Date: 20220303
  Serious: Yes (Life-Threatening, Hospitalization)
  Sender: FDA-Public Use
  Company Number: PT-ALVOGEN-2021-ALVOGEN-117827

PATIENT
  Age: 78 Year
  Sex: Female

DRUGS (2)
  1. LISINOPRIL AND HYDROCHLOROTHIAZIDE [Suspect]
     Active Substance: HYDROCHLOROTHIAZIDE\LISINOPRIL
     Indication: Hypertension
     Route: 048
  2. ACITRETIN [Concomitant]
     Active Substance: ACITRETIN
     Indication: Psoriasis
     Route: 065

REACTIONS (10)
  - Multiple organ dysfunction syndrome [Recovering/Resolving]
  - Distributive shock [Recovering/Resolving]
  - Retroperitoneal abscess [Recovering/Resolving]
  - Gastrointestinal necrosis [Recovering/Resolving]
  - Dry eye [Recovering/Resolving]
  - Skin necrosis [Recovering/Resolving]
  - Mucosal inflammation [Recovering/Resolving]
  - Fistula [Recovering/Resolving]
  - Peritoneal disorder [Recovering/Resolving]
  - Erythrodermic psoriasis [Recovering/Resolving]
